FAERS Safety Report 22217257 (Version 1)
Quarter: 2023Q2

REPORT INFORMATION
  Report Type: Spontaneous
  Country: BE (occurrence: BE)
  Receive Date: 20230417
  Receipt Date: 20230417
  Transmission Date: 20230722
  Serious: Yes (Hospitalization, Other)
  Sender: FDA-Public Use
  Company Number: BE-FAMHP-DHH-N2023-120093

PATIENT
  Sex: Male

DRUGS (8)
  1. DONEPEZIL HYDROCHLORIDE [Suspect]
     Active Substance: DONEPEZIL HYDROCHLORIDE
     Indication: Dementia
     Dosage: 1 DOSAGE FORM, ONCE A DAY(FOR AT LEAST ONE YEAR)
     Route: 048
  2. RISPERDAL [Suspect]
     Active Substance: RISPERIDONE
     Indication: Product used for unknown indication
     Dosage: 0.5 DOSAGE FORM, ONCE A DAY,IN THE EVENING (FOR AT LEAST ONE YEAR)
     Route: 065
  3. ASPIRIN [Concomitant]
     Active Substance: ASPIRIN
     Indication: Product used for unknown indication
     Dosage: 1 DOSAGE FORM, ONCE A DAY(IN THE MORNING)
     Route: 065
  4. ARTEOPTIC LA [Concomitant]
     Indication: Product used for unknown indication
     Dosage: 1 DOSAGE FORM, ONCE A DAY(1 DROP IN THE LEFT EYE)
     Route: 065
  5. BISOPROLOL [Concomitant]
     Active Substance: BISOPROLOL
     Indication: Product used for unknown indication
     Dosage: 1 DOSAGE FORM, ONCE A DAY,IN THE MORNING
     Route: 065
  6. MOLSIDOMINE [Concomitant]
     Active Substance: MOLSIDOMINE
     Indication: Product used for unknown indication
     Dosage: 1 DOSAGE FORM, ONCE A DAY(IN THE MORNING)
     Route: 065
  7. Pantomed [Concomitant]
     Indication: Gastrooesophageal reflux disease
     Dosage: 2 DOSAGE FORM, ONCE A DAY,IN THE MORNING AND IN THE EVENING
     Route: 065
  8. TRAZODONE HYDROCHLORIDE [Concomitant]
     Active Substance: TRAZODONE HYDROCHLORIDE
     Indication: Product used for unknown indication
     Dosage: 0.5 DOSAGE FORM, ONCE A DAY(AT BEDTIME, FOR AT LEAST ONE YEAR)
     Route: 065

REACTIONS (2)
  - Pemphigoid [Recovering/Resolving]
  - Rash [Recovering/Resolving]
